FAERS Safety Report 5849859-1 (Version None)
Quarter: 2008Q3

REPORT INFORMATION
  Report Type: 
  Country: None (occurrence: None)
  Receive Date: 20080815
  Receipt Date: 20080811
  Transmission Date: 20090109
  Serious: Yes (Hospitalization, Other)
  Sender: FDA-Public Use
  Company Number: LTI2008A00144

PATIENT
  Age: 74 Year
  Sex: Male

DRUGS (4)
  1. ACTOS [Suspect]
     Indication: TYPE 2 DIABETES MELLITUS
     Dosage: 30 MG (30 MG, 1 IN 1 D) ORAL
     Route: 048
     Dates: start: 20070428, end: 20071201
  2. AMARYL [Concomitant]
  3. LESCOL [Concomitant]
  4. ATACAND [Concomitant]

REACTIONS (5)
  - ACUTE PULMONARY OEDEMA [None]
  - ATRIAL FIBRILLATION [None]
  - CARDIAC FAILURE [None]
  - OEDEMA PERIPHERAL [None]
  - WEIGHT INCREASED [None]
